FAERS Safety Report 14238640 (Version 1)
Quarter: 2017Q4

REPORT INFORMATION
  Report Type: Spontaneous
  Country: US (occurrence: None)
  Receive Date: 20171129
  Receipt Date: 20171129
  Transmission Date: 20180321
  Serious: Yes (Other)
  Sender: FDA-Public Use
  Company Number: None

PATIENT
  Age: 54 Year
  Sex: Female
  Weight: 79.83 kg

DRUGS (7)
  1. EPIPEN [Concomitant]
     Active Substance: EPINEPHRINE
  2. PENTOXIFYLLINE. [Suspect]
     Active Substance: PENTOXIFYLLINE
     Indication: GRANULOMA ANNULARE
     Dosage: 1 PILL 3X DAILY
     Route: 048
     Dates: start: 20171124, end: 20171127
  3. LISINOPRIL. [Concomitant]
     Active Substance: LISINOPRIL
  4. ZYRTEC [Concomitant]
     Active Substance: CETIRIZINE HYDROCHLORIDE
  5. BENADRYL [Concomitant]
     Active Substance: DIPHENHYDRAMINE HYDROCHLORIDE
  6. RESCUE INHALER [Concomitant]
  7. TYLENOL [Concomitant]
     Active Substance: ACETAMINOPHEN

REACTIONS (14)
  - Nausea [None]
  - Blood pressure diastolic increased [None]
  - Arthralgia [None]
  - Headache [None]
  - Dizziness [None]
  - Nervousness [None]
  - Pain in extremity [None]
  - Musculoskeletal stiffness [None]
  - Vision blurred [None]
  - Heart rate increased [None]
  - Myalgia [None]
  - Pain [None]
  - Muscle spasms [None]
  - Fatigue [None]

NARRATIVE: CASE EVENT DATE: 20171126
